FAERS Safety Report 9415476 (Version 2)
Quarter: 2013Q3

REPORT INFORMATION
  Report Type: Spontaneous
  Country: SE (occurrence: SE)
  Receive Date: 20130723
  Receipt Date: 20130802
  Transmission Date: 20140515
  Serious: Yes (Death, Hospitalization)
  Sender: FDA-Public Use
  Company Number: SE-PFIZER INC-2013214969

PATIENT
  Age: 68 Year
  Sex: Male

DRUGS (8)
  1. RAMIPRIL [Suspect]
     Dosage: UNK
     Route: 065
  2. METOPROLOL TARTRATE [Suspect]
     Dosage: UNK
     Route: 065
  3. AMLODIPINE BESILATE [Suspect]
     Dosage: UNK
     Route: 065
  4. SUSCARD [Suspect]
     Dosage: UNK
     Route: 065
  5. NOVOMIX [Suspect]
     Indication: TYPE 2 DIABETES MELLITUS
     Dosage: 16 IU, UNK
     Route: 065
  6. PLACEBO [Suspect]
     Indication: TYPE 2 DIABETES MELLITUS
     Dosage: UNK
     Route: 048
     Dates: end: 20110408
  7. PLACEBO [Suspect]
     Dosage: UNK
     Route: 048
     Dates: start: 2012, end: 2012
  8. ACETYLSALICYLIC ACID [Concomitant]

REACTIONS (3)
  - Arrhythmia [Fatal]
  - Pneumonia [Recovered/Resolved]
  - Syncope [Recovered/Resolved]
